FAERS Safety Report 9249221 (Version 1)
Quarter: 2013Q2

REPORT INFORMATION
  Report Type: Report from Study
  Country: US (occurrence: US)
  Receive Date: 20130423
  Receipt Date: 20130423
  Transmission Date: 20140414
  Serious: Yes (Hospitalization)
  Sender: FDA-Public Use
  Company Number: US-BRISTOL-MYERS SQUIBB COMPANY-18720029

PATIENT
  Age: 61 Year
  Sex: Male
  Weight: 132.69 kg

DRUGS (3)
  1. IPILIMUMAB [Suspect]
     Indication: BLADDER TRANSITIONAL CELL CARCINOMA
     Dosage: DAY 1
     Route: 042
     Dates: start: 20130122, end: 20130219
  2. CISPLATIN [Suspect]
     Indication: BLADDER TRANSITIONAL CELL CARCINOMA
     Route: 042
     Dates: start: 20121204, end: 20130219
  3. GEMZAR [Suspect]
     Indication: BLADDER TRANSITIONAL CELL CARCINOMA
     Dosage: DAY 1 + 8
     Route: 042
     Dates: start: 20121204, end: 20130219

REACTIONS (1)
  - Colitis ulcerative [Recovered/Resolved]
